FAERS Safety Report 25148138 (Version 3)
Quarter: 2025Q2

REPORT INFORMATION
  Report Type: Spontaneous
  Country: PL (occurrence: PL)
  Receive Date: 20250402
  Receipt Date: 20250422
  Transmission Date: 20250716
  Serious: Yes (Other)
  Sender: SANDOZ
  Company Number: PL-SANDOZ-SDZ2025PL019665

PATIENT
  Age: 40 Year
  Sex: Male

DRUGS (4)
  1. ADALIMUMAB [Suspect]
     Active Substance: ADALIMUMAB
     Dosage: 40MG /2WEEKS
     Route: 065
  2. ADALIMUMAB [Suspect]
     Active Substance: ADALIMUMAB
     Indication: Product used for unknown indication
     Dosage: 40MG/2WEEKS
     Route: 065
  3. NIFUROXAZIDE [Suspect]
     Active Substance: NIFUROXAZIDE
     Indication: Product used for unknown indication
     Route: 058
  4. METHOTREXATE [Suspect]
     Active Substance: METHOTREXATE
     Indication: Product used for unknown indication
     Dosage: 25MG/WEEK
     Route: 058

REACTIONS (2)
  - Rebound psoriasis [Unknown]
  - Drug ineffective [Unknown]
